FAERS Safety Report 4526870-4 (Version None)
Quarter: 2004Q4

REPORT INFORMATION
  Report Type: 
  Country: None (occurrence: None)
  Receive Date: 20041213
  Receipt Date: 20041129
  Transmission Date: 20050328
  Serious: Yes (Other)
  Sender: FDA-Public Use
  Company Number: 2004102136

PATIENT
  Age: 70 Year
  Sex: Male

DRUGS (4)
  1. CABERGOLINE [Suspect]
     Indication: PARKINSON'S DISEASE
     Dosage: ORAL
     Route: 048
  2. AMANTADINE HCL [Concomitant]
  3. SINEMET [Concomitant]
  4. DONEPEZIL HCL [Concomitant]

REACTIONS (8)
  - ANGER [None]
  - CONDITION AGGRAVATED [None]
  - CONVERSION DISORDER [None]
  - HALLUCINATION [None]
  - INCOHERENT [None]
  - MOVEMENT DISORDER [None]
  - PARKINSON'S DISEASE [None]
  - SCREAMING [None]
